FAERS Safety Report 4300356-4 (Version None)
Quarter: 2004Q1

REPORT INFORMATION
  Report Type: 
  Country: None (occurrence: None)
  Receive Date: 20040220
  Receipt Date: 20040102
  Transmission Date: 20041129
  Serious: Yes (Other)
  Sender: FDA-Public Use
  Company Number: US-GLAXOSMITHKLINE-A0492409A

PATIENT
  Age: 61 Year
  Sex: Male

DRUGS (6)
  1. AVANDIA [Suspect]
     Indication: DIABETES MELLITUS INSULIN-DEPENDENT
     Route: 048
  2. PREVACID [Concomitant]
  3. PROPULSID [Concomitant]
  4. NPH INSULIN [Concomitant]
  5. REGULAR INSULIN [Concomitant]
  6. AMBIEN [Concomitant]

REACTIONS (27)
  - ABDOMINAL DISTENSION [None]
  - ANAEMIA [None]
  - ASCITES [None]
  - ASTHENIA [None]
  - CARDIAC VALVE DISEASE [None]
  - CHOLECYSTITIS [None]
  - COMA [None]
  - DISORIENTATION [None]
  - DRUG HYPERSENSITIVITY [None]
  - ENCEPHALOPATHY [None]
  - GENERALISED OEDEMA [None]
  - HEPATIC CIRRHOSIS [None]
  - HEPATIC ENZYME INCREASED [None]
  - HEPATIC FAILURE [None]
  - HEPATITIS ACUTE [None]
  - JAUNDICE [None]
  - LIVER TRANSPLANT [None]
  - MALAISE [None]
  - OEDEMA PERIPHERAL [None]
  - PERICARDIAL EFFUSION [None]
  - PERIPHERAL VASCULAR DISORDER [None]
  - RENAL CYST [None]
  - SUBCLAVIAN ARTERY STENOSIS [None]
  - URINARY TRACT INFECTION ENTEROCOCCAL [None]
  - VASCULAR OCCLUSION [None]
  - VENTRICULAR HYPERTROPHY [None]
  - WOUND INFECTION [None]
